FAERS Safety Report 23913175 (Version 1)
Quarter: 2024Q2

REPORT INFORMATION
  Report Type: Spontaneous
  Country: AR (occurrence: None)
  Receive Date: 20240529
  Receipt Date: 20240529
  Transmission Date: 20240716
  Serious: Yes (Hospitalization)
  Sender: FDA-Public Use
  Company Number: AR-Orion Corporation ORION PHARMA-ENTC2024-0062

PATIENT
  Age: 68 Year
  Sex: Male

DRUGS (2)
  1. STALEVO [Suspect]
     Active Substance: CARBIDOPA\ENTACAPONE\LEVODOPA
     Indication: Parkinson^s disease
  2. NULIPAR LP [Concomitant]
     Dosage: 1.5 (UNIT UNKNOWN)

REACTIONS (4)
  - Neuroprosthesis implantation [Unknown]
  - Product dose omission issue [Unknown]
  - Product use issue [Unknown]
  - Musculoskeletal stiffness [Unknown]
